FAERS Safety Report 17619140 (Version 2)
Quarter: 2020Q3

REPORT INFORMATION
  Report Type: Report from Study
  Country: US (occurrence: US)
  Receive Date: 20200402
  Receipt Date: 20200706
  Transmission Date: 20201102
  Serious: Yes (Death, Hospitalization, Other)
  Sender: FDA-Public Use
  Company Number: US-GILEAD-2020-0457608

PATIENT
  Age: 39 Year
  Sex: Male

DRUGS (3)
  1. EMTRICITABINE/TENOFOVIR ALAFENAMIDE [Suspect]
     Active Substance: EMTRICITABINE\TENOFOVIR
     Indication: ACQUIRED IMMUNODEFICIENCY SYNDROME
     Dosage: 225 MG, QD
     Route: 048
     Dates: start: 20170530, end: 20191016
  2. TIVICAY [Concomitant]
     Active Substance: DOLUTEGRAVIR SODIUM
     Dosage: UNK
     Dates: start: 20170513, end: 20191016
  3. DAPSONE. [Concomitant]
     Active Substance: DAPSONE
     Dosage: UNK
     Dates: start: 20170513, end: 20191016

REACTIONS (6)
  - Coagulopathy [Fatal]
  - Haematoma [Fatal]
  - Shock haemorrhagic [Fatal]
  - Hepatic cirrhosis [Fatal]
  - Peritonitis [Fatal]
  - Intra-abdominal haemorrhage [Fatal]

NARRATIVE: CASE EVENT DATE: 20190925
